FAERS Safety Report 10064767 (Version 1)
Quarter: 2014Q2

REPORT INFORMATION
  Report Type: Spontaneous
  Country: US (occurrence: US)
  Receive Date: 20140408
  Receipt Date: 20140408
  Transmission Date: 20141212
  Serious: No
  Sender: FDA-Public Use
  Company Number: US-GLAXOSMITHKLINE-A1057484A

PATIENT
  Age: 19 Year
  Sex: Male

DRUGS (3)
  1. POTIGA [Suspect]
     Indication: CONVULSION
     Dosage: 400MG THREE TIMES PER DAY
     Route: 048
     Dates: start: 201303
  2. CARBATROL [Concomitant]
  3. UNKNOWN MEDICATION [Concomitant]

REACTIONS (1)
  - Tremor [Not Recovered/Not Resolved]
